FAERS Safety Report 5381203-9 (Version None)
Quarter: 2007Q3

REPORT INFORMATION
  Report Type: 
  Country: None (occurrence: None)
  Receive Date: 20070706
  Receipt Date: 20070627
  Transmission Date: 20080115
  Serious: Yes (Life-Threatening, Hospitalization)
  Sender: FDA-Public Use
  Company Number: ES-PFIZER INC-2007052787

PATIENT
  Age: 85 Year
  Sex: Female
  Weight: 55 kg

DRUGS (7)
  1. ALDACTONE [Suspect]
     Indication: HYPERTENSION
     Route: 048
     Dates: start: 20060207, end: 20070515
  2. OLMESARTAN MEDOXOMIL [Interacting]
     Indication: HYPERTENSION
     Route: 048
     Dates: start: 20060207, end: 20070515
  3. AMITRIPTYLINE HCL [Concomitant]
     Route: 048
     Dates: start: 20070207, end: 20070515
  4. OMEPRAZOLE [Concomitant]
     Route: 048
     Dates: start: 20070207, end: 20070515
  5. FERROUS SULFATE [Concomitant]
     Dates: start: 20070207, end: 20070515
  6. FOLIC ACID [Concomitant]
     Dates: start: 20070207, end: 20070515
  7. DILTIAZEM [Concomitant]
     Dates: start: 20070207, end: 20070515

REACTIONS (5)
  - DIZZINESS [None]
  - DRUG INTERACTION [None]
  - HYPERKALAEMIA [None]
  - RENAL FAILURE ACUTE [None]
  - SYNCOPE [None]
